FAERS Safety Report 18792059 (Version 1)
Quarter: 2021Q1

REPORT INFORMATION
  Report Type: Spontaneous
  Country: US (occurrence: US)
  Receive Date: 20210127
  Receipt Date: 20210127
  Transmission Date: 20210419
  Serious: No
  Sender: FDA-Public Use
  Company Number: US-SA-2021SA020072

PATIENT
  Age: 84 Year
  Sex: Female

DRUGS (2)
  1. DUPIXENT [Suspect]
     Active Substance: DUPILUMAB
     Indication: ECZEMA
     Dosage: 300 MG, QOW
     Dates: start: 201903
  2. NA [Concomitant]
     Active Substance: SODIUM

REACTIONS (3)
  - Rash macular [Unknown]
  - Inappropriate schedule of product administration [Unknown]
  - Eczema [Unknown]

NARRATIVE: CASE EVENT DATE: 20210115
